FAERS Safety Report 17939640 (Version 2)
Quarter: 2020Q3

REPORT INFORMATION
  Report Type: Spontaneous
  Country: DE (occurrence: DE)
  Receive Date: 20200625
  Receipt Date: 20200720
  Transmission Date: 20201103
  Serious: Yes (Other)
  Sender: FDA-Public Use
  Company Number: DE-ALK-ABELLO A/S-2020AA001906

PATIENT

DRUGS (2)
  1. GRAZAX [Suspect]
     Active Substance: PHLEUM PRATENSE POLLEN
     Indication: PRODUCT USED FOR UNKNOWN INDICATION
     Dosage: 75000 SQ?T
     Route: 060
     Dates: start: 20200618
  2. ITULAZAX [Suspect]
     Active Substance: BETULA PENDULA POLLEN
     Indication: PRODUCT USED FOR UNKNOWN INDICATION
     Dosage: 12 SQ?BET
     Route: 060
     Dates: start: 20200618

REACTIONS (1)
  - Epilepsy [Recovered/Resolved]

NARRATIVE: CASE EVENT DATE: 20200618
